FAERS Safety Report 5125825-9 (Version None)
Quarter: 2006Q3

REPORT INFORMATION
  Report Type: 
  Country: None (occurrence: None)
  Receive Date: 20060818
  Receipt Date: 20060607
  Transmission Date: 20061208
  Serious: No
  Sender: FDA-Public Use
  Company Number: SPV1-2006-00032

PATIENT
  Age: 45 Year
  Sex: Female
  Weight: 108.8 kg

DRUGS (4)
  1. FOSRENOL [Suspect]
     Indication: HYPERPHOSPHATAEMIA
     Dosage: 1000 MG, 3X/DAY:TID, EACH MEAL
     Dates: start: 20060423
  2. SENSIPAR (CINACALCET HYDROCHLORIDE) [Concomitant]
  3. INSULIN (INSULIN) [Concomitant]
  4. AVANDIA [Concomitant]

REACTIONS (7)
  - ERYTHEMA [None]
  - HEADACHE [None]
  - OEDEMA PERIPHERAL [None]
  - PAIN IN EXTREMITY [None]
  - SKIN EXFOLIATION [None]
  - SKIN HYPERTROPHY [None]
  - SKIN TIGHTNESS [None]
